FAERS Safety Report 21308976 (Version 1)
Quarter: 2022Q3

REPORT INFORMATION
  Report Type: Spontaneous
  Country: CA (occurrence: CA)
  Receive Date: 20220908
  Receipt Date: 20220908
  Transmission Date: 20221027
  Serious: Yes (Life-Threatening, Hospitalization, Other)
  Sender: FDA-Public Use
  Company Number: CA-PFIZER INC-202201138558

PATIENT
  Age: 63 Year
  Sex: Male
  Weight: 65 kg

DRUGS (16)
  1. HYDROMORPHONE HYDROCHLORIDE [Suspect]
     Active Substance: HYDROMORPHONE HYDROCHLORIDE
     Indication: Postoperative analgesia
     Dosage: 4 MG
     Route: 008
  2. BUPIVACAINE HYDROCHLORIDE [Suspect]
     Active Substance: BUPIVACAINE HYDROCHLORIDE
     Indication: Procedural pain
     Dosage: 250 ML
     Route: 008
  3. ACETAMINOPHEN [Concomitant]
     Active Substance: ACETAMINOPHEN
  4. CEFTRIAXONE SODIUM [Concomitant]
     Active Substance: CEFTRIAXONE SODIUM
  5. DIMENHYDRINATE [Concomitant]
     Active Substance: DIMENHYDRINATE
     Dosage: UNK
  6. GABAPENTIN [Concomitant]
     Active Substance: GABAPENTIN
  7. HALOPERIDOL [Concomitant]
     Active Substance: HALOPERIDOL
  8. HEPARIN SODIUM [Concomitant]
     Active Substance: HEPARIN SODIUM
  9. HYDROMORPHONE [Concomitant]
     Active Substance: HYDROMORPHONE
  10. METOCLOPRAMIDE HYDROCHLORIDE [Concomitant]
     Active Substance: METOCLOPRAMIDE HYDROCHLORIDE
  11. METRONIDAZOLE [Concomitant]
     Active Substance: METRONIDAZOLE
  12. NITROGLYCERIN [Concomitant]
     Active Substance: NITROGLYCERIN
  13. NUBAIN [Concomitant]
     Active Substance: NALBUPHINE HYDROCHLORIDE
  14. ONDANSETRON HYDROCHLORIDE [Concomitant]
     Active Substance: ONDANSETRON HYDROCHLORIDE
  15. PANTOPRAZOLE [Concomitant]
     Active Substance: PANTOPRAZOLE
  16. PAROXETINE [Concomitant]
     Active Substance: PAROXETINE

REACTIONS (1)
  - Sedation complication [Recovering/Resolving]
